FAERS Safety Report 18385505 (Version 2)
Quarter: 2020Q4

REPORT INFORMATION
  Report Type: Spontaneous
  Country: US (occurrence: US)
  Receive Date: 20201015
  Receipt Date: 20201120
  Transmission Date: 20210114
  Serious: No
  Sender: FDA-Public Use
  Company Number: US-JNJFOC-20201010919

PATIENT
  Age: 63 Year
  Sex: Female
  Weight: 78.18 kg

DRUGS (1)
  1. WOMENS ROGAINE UNSCENTED [Suspect]
     Active Substance: MINOXIDIL
     Indication: ALOPECIA
     Dosage: ONE PUMP?LAST ADMINISTRATION DATE: 05/OCT/2020
     Route: 061
     Dates: start: 20200601, end: 20201001

REACTIONS (4)
  - Application site rash [Recovered/Resolved]
  - Incorrect dose administered [Unknown]
  - Application site pain [Recovered/Resolved]
  - Pruritus [Recovered/Resolved]

NARRATIVE: CASE EVENT DATE: 20200601
